FAERS Safety Report 15965713 (Version 1)
Quarter: 2019Q1

REPORT INFORMATION
  Report Type: Spontaneous
  Country: US (occurrence: US)
  Receive Date: 20190215
  Receipt Date: 20190215
  Transmission Date: 20190418
  Serious: No
  Sender: FDA-Public Use
  Company Number: US-BAYER-2019-032942

PATIENT
  Sex: Male
  Weight: 96 kg

DRUGS (1)
  1. MIRALAX [Suspect]
     Active Substance: POLYETHYLENE GLYCOL 3350
     Indication: GASTROINTESTINAL DISORDER
     Dosage: 17 UNK
     Route: 048
     Dates: end: 2018

REACTIONS (2)
  - Tinnitus [Unknown]
  - Dry mouth [Unknown]

NARRATIVE: CASE EVENT DATE: 2018
